FAERS Safety Report 5697428-9 (Version None)
Quarter: 2008Q2

REPORT INFORMATION
  Report Type: 
  Country: None (occurrence: None)
  Receive Date: 20080407
  Receipt Date: 20080402
  Transmission Date: 20081010
  Serious: Yes (Life-Threatening, Other)
  Sender: FDA-Public Use
  Company Number: PHHO2008TR02597

PATIENT
  Age: 48 Year
  Sex: Male

DRUGS (3)
  1. AMN107 [Suspect]
     Indication: CHRONIC MYELOID LEUKAEMIA
     Dosage: 400 MG, BID
     Route: 048
     Dates: start: 20080109, end: 20080130
  2. ASPIRIN [Concomitant]
  3. H2 BLOCKER [Concomitant]
     Indication: DYSPEPSIA

REACTIONS (2)
  - DIABETES MELLITUS [None]
  - ELECTROCARDIOGRAM QT PROLONGED [None]
